FAERS Safety Report 8077212-1 (Version None)
Quarter: 2012Q1

REPORT INFORMATION
  Report Type: 
  Country: None (occurrence: None)
  Receive Date: 20120127
  Receipt Date: 20120117
  Transmission Date: 20120608
  Serious: Yes (Life-Threatening, Hospitalization, Other)
  Sender: FDA-Public Use
  Company Number: FR-ABBOTT-10P-056-0640619-00

PATIENT
  Age: 33 Year
  Sex: Female
  Weight: 49 kg

DRUGS (5)
  1. PREDNISOLONE [Concomitant]
     Indication: CROHN'S DISEASE
     Dates: start: 20050225
  2. HUMIRA [Suspect]
     Route: 058
     Dates: end: 20100118
  3. HUMIRA [Suspect]
     Indication: CROHN'S DISEASE
     Route: 058
     Dates: start: 20080909, end: 20080909
  4. HUMIRA [Suspect]
     Route: 058
  5. AZATHIOPRINE [Concomitant]
     Indication: CROHN'S DISEASE
     Dates: start: 20010801

REACTIONS (8)
  - ACUTE RESPIRATORY DISTRESS SYNDROME [None]
  - MALNUTRITION [None]
  - LARGE INTESTINE PERFORATION [None]
  - INFECTIOUS PERITONITIS [None]
  - FUNGAL PERITONITIS [None]
  - PNEUMOTHORAX [None]
  - PLEURAL EFFUSION [None]
  - SPLENIC RUPTURE [None]
